FAERS Safety Report 7234078-7 (Version None)
Quarter: 2011Q1

REPORT INFORMATION
  Report Type: 
  Country: None (occurrence: None)
  Receive Date: 20110113
  Receipt Date: 20110113
  Transmission Date: 20110831
  Serious: No
  Sender: FDA-Public Use
  Company Number: None

PATIENT
  Sex: Male

DRUGS (1)
  1. ROPINIROLE [Suspect]
     Indication: RESTLESS LEGS SYNDROME
     Dosage: (TOTAL DAILY DOSE) 12.0 MG ORAL
     Route: 048
     Dates: start: 20090601, end: 20100701

REACTIONS (9)
  - INSOMNIA [None]
  - CONDITION AGGRAVATED [None]
  - DRUG WITHDRAWAL SYNDROME [None]
  - RESTLESS LEGS SYNDROME [None]
  - DYSKINESIA [None]
  - QUALITY OF LIFE DECREASED [None]
  - DRUG DEPENDENCE [None]
  - ACTIVITIES OF DAILY LIVING IMPAIRED [None]
  - DRUG EFFECT DECREASED [None]
